FAERS Safety Report 9312530 (Version 2)
Quarter: 2013Q2

REPORT INFORMATION
  Report Type: Spontaneous
  Country: GB (occurrence: None)
  Receive Date: 20130520
  Receipt Date: 20130524
  Transmission Date: 20140414
  Serious: Yes (Other)
  Sender: FDA-Public Use
  Company Number: AUR-APL-2013-04067

PATIENT
  Age: 64 Year
  Sex: Male
  Weight: 68.5 kg

DRUGS (11)
  1. RAMIPRIL [Suspect]
     Indication: PRODUCT USED FOR UNKNOWN INDICATION
     Dates: start: 20130208
  2. ASPIRIN [Concomitant]
  3. ATORVASTATIN (ATORVASTATIN) [Concomitant]
  4. CO-CODAMOL (PANADEINE CO) [Concomitant]
  5. ELANTAN (ISOSORBIDE MONONITRATE) [Concomitant]
  6. FULTIUM (COLECALCIFEROL) [Concomitant]
  7. GLYCERYL TRINITRATE (GLYCERYL TRINITRATE) [Concomitant]
  8. ISOSORBIDE MONONITRATE (ISOSORBIDE MONONITRATE) [Concomitant]
  9. NIFEDIPINE (NIFEDIPINE) [Concomitant]
  10. PROPRANOLOL (PROPRANOLOL) [Concomitant]
  11. RANITIDINE (RANITIDINE) [Concomitant]

REACTIONS (3)
  - Cough [None]
  - Dyspnoea [None]
  - Nasal obstruction [None]
